FAERS Safety Report 24806736 (Version 1)
Quarter: 2025Q1

REPORT INFORMATION
  Report Type: Spontaneous
  Country: CA (occurrence: CA)
  Receive Date: 20250104
  Receipt Date: 20250104
  Transmission Date: 20250409
  Serious: Yes (Hospitalization)
  Sender: MACLEODS
  Company Number: CA-MACLEODS PHARMA-MAC2024050882

PATIENT

DRUGS (1)
  1. TRIAMCINOLONE [Suspect]
     Active Substance: TRIAMCINOLONE
     Indication: Alopecia
     Dosage: FIVE 25 MG INJECTIONS OF TRIAMCINOLONE DIACETATE
     Route: 065

REACTIONS (6)
  - Swelling face [Unknown]
  - Weight increased [Unknown]
  - Lipohypertrophy [Unknown]
  - Cushingoid [Unknown]
  - Hypothalamic pituitary adrenal axis suppression [Recovering/Resolving]
  - Skin striae [Unknown]
